FAERS Safety Report 4519219-4 (Version None)
Quarter: 2004Q4

REPORT INFORMATION
  Report Type: 
  Country: None (occurrence: None)
  Receive Date: 20041206
  Receipt Date: 20040921
  Transmission Date: 20050328
  Serious: No
  Sender: FDA-Public Use
  Company Number: US-MERCK-0409USA01845

PATIENT
  Age: 57 Year
  Sex: Female
  Weight: 105 kg

DRUGS (6)
  1. ZOCOR [Suspect]
     Indication: BLOOD CHOLESTEROL INCREASED
     Route: 048
  2. LOPRESSOR [Concomitant]
     Route: 065
  3. TOPROL-XL [Concomitant]
     Route: 065
  4. IMDUR [Concomitant]
     Route: 065
  5. ASPIRIN [Concomitant]
     Route: 065
  6. ALPHAGAN [Concomitant]
     Route: 065

REACTIONS (1)
  - PAIN IN EXTREMITY [None]
